FAERS Safety Report 21570490 (Version 1)
Quarter: 2022Q4

REPORT INFORMATION
  Report Type: Spontaneous
  Country: IT (occurrence: IT)
  Receive Date: 20221109
  Receipt Date: 20221109
  Transmission Date: 20230112
  Serious: Yes (Other)
  Sender: FDA-Public Use
  Company Number: IT-MINISAL02-890302

PATIENT
  Age: 68 Year
  Sex: Female

DRUGS (3)
  1. METFORMIN [Interacting]
     Active Substance: METFORMIN HYDROCHLORIDE
     Indication: Type 2 diabetes mellitus
     Dosage: 750 MILLIGRAM, ONCE A DAY
     Route: 048
     Dates: start: 20220101, end: 20220716
  2. INSULIN NOS [Interacting]
     Active Substance: INSULIN NOS
     Indication: Type 2 diabetes mellitus
     Dosage: 16 INTERNATIONAL UNIT, ONCE A DAY ((INSULINA LENTA: 16 UI/DIE)
     Route: 058
     Dates: start: 20220101
  3. INSULIN NOS [Interacting]
     Active Substance: INSULIN NOS
     Dosage: 42 INTERNATIONAL UNIT, ONCE A DAY (INSULINA RAPIDA: 12+14+16 UI/DIE)
     Route: 058
     Dates: start: 20220101

REACTIONS (2)
  - Hypoglycaemic coma [Recovered/Resolved]
  - Drug interaction [Recovered/Resolved]

NARRATIVE: CASE EVENT DATE: 20220714
